FAERS Safety Report 21176778 (Version 1)
Quarter: 2022Q3

REPORT INFORMATION
  Report Type: Spontaneous
  Country: US (occurrence: None)
  Receive Date: 20220804
  Receipt Date: 20220804
  Transmission Date: 20221026
  Serious: Yes (unspecified)
  Sender: FDA-Public Use
  Company Number: None

PATIENT
  Age: 70 Year
  Sex: Female
  Weight: 65.25 kg

DRUGS (1)
  1. BUPROPION HYDROCHLORIDE [Suspect]
     Active Substance: BUPROPION HYDROCHLORIDE
     Indication: Depression
     Dosage: OTHER QUANTITY : 1 TABLET(S);?
     Route: 048
     Dates: start: 20220606

REACTIONS (8)
  - Abdominal pain upper [None]
  - Diarrhoea [None]
  - Muscular weakness [None]
  - Chest discomfort [None]
  - Dizziness [None]
  - Hyperhidrosis [None]
  - Eye irritation [None]
  - Pollakiuria [None]

NARRATIVE: CASE EVENT DATE: 20220730
